FAERS Safety Report 5777157-3 (Version None)
Quarter: 2008Q2

REPORT INFORMATION
  Report Type: 
  Country: None (occurrence: None)
  Receive Date: 20080617
  Receipt Date: 20080617
  Transmission Date: 20081010
  Serious: No
  Sender: FDA-Public Use
  Company Number: None

PATIENT
  Age: 40 Year
  Sex: Male
  Weight: 79.3795 kg

DRUGS (1)
  1. ZICAM [Suspect]
     Indication: NASOPHARYNGITIS
     Dosage: 2 SQUIRTS/PUMPS IN NOSTRIL EVERY 4 HOURS NASAL
     Route: 045
     Dates: start: 20080605, end: 20080610

REACTIONS (3)
  - AGEUSIA [None]
  - ANOSMIA [None]
  - BURNING SENSATION [None]
